FAERS Safety Report 10205100 (Version 1)
Quarter: 2014Q2

REPORT INFORMATION
  Report Type: Spontaneous
  Country: IT (occurrence: IT)
  Receive Date: 20140529
  Receipt Date: 20140529
  Transmission Date: 20141212
  Serious: Yes (Hospitalization)
  Sender: FDA-Public Use
  Company Number: IT-WATSON-2014-10946

PATIENT
  Age: 29 Year
  Sex: Female

DRUGS (2)
  1. ZOLPIDEM (UNKNOWN) [Suspect]
     Indication: INSOMNIA
     Dosage: 30 MG, DAILY
     Route: 048
     Dates: start: 20081204, end: 20121204
  2. ALPRAZOLAM (UNKNOWN) [Suspect]
     Indication: ANXIETY
     Dosage: 10 MG, DAILY
     Route: 048
     Dates: start: 20081204, end: 20121204

REACTIONS (1)
  - Drug dependence [Recovering/Resolving]
